FAERS Safety Report 9761484 (Version 1)
Quarter: 2013Q4

REPORT INFORMATION
  Report Type: Spontaneous
  Country: US (occurrence: US)
  Receive Date: 20131216
  Receipt Date: 20131216
  Transmission Date: 20140711
  Serious: No
  Sender: FDA-Public Use
  Company Number: US-BIOGENIDEC-2013BI107628

PATIENT
  Age: 67 Year
  Sex: Female

DRUGS (5)
  1. TECFIDERA [Suspect]
     Indication: MULTIPLE SCLEROSIS
     Route: 048
     Dates: start: 20130801, end: 20130807
  2. TECFIDERA [Suspect]
     Indication: MULTIPLE SCLEROSIS
     Route: 048
     Dates: start: 20130808
  3. COPAXONE [Concomitant]
     Indication: MULTIPLE SCLEROSIS
  4. REBIF [Concomitant]
     Indication: MULTIPLE SCLEROSIS
  5. TYSABRI [Concomitant]
     Indication: MULTIPLE SCLEROSIS

REACTIONS (2)
  - Flushing [Recovered/Resolved]
  - Diarrhoea [Not Recovered/Not Resolved]
